FAERS Safety Report 6636473-3 (Version None)
Quarter: 2010Q1

REPORT INFORMATION
  Report Type: 
  Country: None (occurrence: None)
  Receive Date: 20100316
  Receipt Date: 20100308
  Transmission Date: 20100710
  Serious: Yes (Other)
  Sender: FDA-Public Use
  Company Number: US-PFIZER INC-2010030391

PATIENT
  Sex: Male
  Weight: 46.712 kg

DRUGS (8)
  1. GLUCOTROL [Suspect]
     Indication: TYPE 2 DIABETES MELLITUS
     Dosage: UNK
  2. GLUCOTROL XL [Suspect]
     Indication: DIABETES MELLITUS
     Dosage: UNK, 2X/DAY
     Dates: start: 19980101, end: 19980101
  3. LISINOPRIL [Suspect]
     Indication: HYPERTENSION
     Dosage: 20 MG, UNK
  4. PRAVASTATIN [Suspect]
     Indication: BLOOD CHOLESTEROL INCREASED
     Dosage: 40 MG, UNK
  5. GLIPIZIDE [Suspect]
     Indication: DIABETES MELLITUS
     Dosage: 10 MG, 2X/DAY
     Dates: start: 20080101
  6. ASPIRIN [Suspect]
     Indication: BACK PAIN
     Dosage: 500 MG, 1X/DAY
  7. CITRACAL + D [Suspect]
     Dosage: UNK, 2X/DAY
     Dates: end: 20010201
  8. GLUCOPHAGE [Concomitant]
     Indication: DIABETES MELLITUS
     Dosage: 1000 MG, 1X/DAY

REACTIONS (6)
  - BLOOD GLUCOSE INCREASED [None]
  - DRUG HYPERSENSITIVITY [None]
  - ERYTHEMA [None]
  - INSOMNIA [None]
  - PRURITUS [None]
  - RASH [None]
